FAERS Safety Report 4495616-0 (Version None)
Quarter: 2004Q4

REPORT INFORMATION
  Report Type: 
  Country: None (occurrence: None)
  Receive Date: 20041108
  Receipt Date: 20041026
  Transmission Date: 20050328
  Serious: Yes (Hospitalization)
  Sender: FDA-Public Use
  Company Number: US-MERCK-0410USA03980

PATIENT
  Age: 40 Year
  Sex: Female

DRUGS (1)
  1. ZETIA [Suspect]
     Indication: LIPIDS INCREASED
     Route: 048
     Dates: start: 20041023, end: 20041023

REACTIONS (7)
  - ANXIETY [None]
  - DRUG HYPERSENSITIVITY [None]
  - HYPERSENSITIVITY [None]
  - LETHARGY [None]
  - PALPITATIONS [None]
  - PANIC ATTACK [None]
  - THROAT TIGHTNESS [None]
